FAERS Safety Report 23483616 (Version 2)
Quarter: 2024Q1

REPORT INFORMATION
  Report Type: Spontaneous
  Country: US (occurrence: US)
  Receive Date: 20240205
  Receipt Date: 20240220
  Transmission Date: 20240410
  Serious: No
  Sender: FDA-Public Use
  Company Number: US-PFIZER INC-PV202300155887

PATIENT
  Age: 72 Year
  Sex: Male
  Weight: 78.005 kg

DRUGS (5)
  1. TALZENNA [Suspect]
     Active Substance: TALAZOPARIB TOSYLATE
     Indication: Prostate cancer
     Dosage: 0.5 MG, DAILY (TAKES 0.5 MG BY MOUTH DAILY WITH OR WITHOUT FOOD)
     Route: 048
     Dates: start: 20230828
  2. TALZENNA [Suspect]
     Active Substance: TALAZOPARIB TOSYLATE
     Indication: Prostate cancer
     Dosage: 0.5 MG, CYCLIC (DAILY WITH OR WITHOUT FOOD. REGIMEN BUILT ON A 28 DAY CYCLE)
     Route: 048
  3. LUPRON [Concomitant]
     Active Substance: LEUPROLIDE ACETATE
     Dosage: EVERY 6 MONTHS
  4. XTANDI [Concomitant]
     Active Substance: ENZALUTAMIDE
     Dosage: 160 MG, CYCLIC (D 1-28 Q28D X 12)
     Dates: start: 20230828
  5. NUBEQA [Concomitant]
     Active Substance: DAROLUTAMIDE

REACTIONS (7)
  - Hypertonic bladder [Recovering/Resolving]
  - Back pain [Recovering/Resolving]
  - Haematocrit decreased [Unknown]
  - Haemoglobin decreased [Unknown]
  - Prostatic specific antigen increased [Unknown]
  - Therapeutic response unexpected [Unknown]
  - Increased appetite [Unknown]

NARRATIVE: CASE EVENT DATE: 20231019
